FAERS Safety Report 11228187 (Version 1)
Quarter: 2015Q2

REPORT INFORMATION
  Report Type: Report from Study
  Country: US (occurrence: PR)
  Receive Date: 20150630
  Receipt Date: 20150630
  Transmission Date: 20150821
  Serious: Yes (Other)
  Sender: FDA-Public Use
  Company Number: US-BAYER-2015-030738

PATIENT
  Age: 72 Year
  Sex: Female
  Weight: 80.73 kg

DRUGS (2)
  1. STIVARGA [Suspect]
     Active Substance: REGORAFENIB
     Indication: RECTOSIGMOID CANCER
     Dosage: 160 MG
     Route: 048
  2. STIVARGA [Suspect]
     Active Substance: REGORAFENIB
     Indication: RECTOSIGMOID CANCER
     Dosage: 40 MG DAILY DOSE
     Route: 048
     Dates: start: 20150121

REACTIONS (10)
  - Pain in extremity [None]
  - Skin warm [None]
  - Flatulence [Unknown]
  - Abasia [None]
  - Erythema [None]
  - Abdominal discomfort [Unknown]
  - Diarrhoea [Unknown]
  - Pain [Unknown]
  - Haemoglobin decreased [None]
  - Hypophagia [None]
